FAERS Safety Report 18357260 (Version 3)
Quarter: 2020Q4

REPORT INFORMATION
  Report Type: Spontaneous
  Country: US (occurrence: US)
  Receive Date: 20201008
  Receipt Date: 20201224
  Transmission Date: 20210114
  Serious: Yes (Death, Hospitalization)
  Sender: FDA-Public Use
  Company Number: US-SCIEGEN-2020SCILIT00335

PATIENT
  Age: 67 Year
  Sex: Male

DRUGS (4)
  1. ATORVASTATIN [Concomitant]
     Active Substance: ATORVASTATIN
     Indication: PRODUCT USED FOR UNKNOWN INDICATION
     Route: 065
  2. CLOPIDOGREL [Concomitant]
     Active Substance: CLOPIDOGREL BISULFATE
     Indication: PRODUCT USED FOR UNKNOWN INDICATION
     Route: 065
  3. RANOLAZINE EXTENDED-RELEASE TABLETS [Suspect]
     Active Substance: RANOLAZINE
     Indication: PRODUCT USED FOR UNKNOWN INDICATION
     Dosage: 30 G
     Route: 065
  4. CLONAZEPAM. [Concomitant]
     Active Substance: CLONAZEPAM
     Indication: PRODUCT USED FOR UNKNOWN INDICATION
     Route: 065

REACTIONS (10)
  - Mental status changes [Unknown]
  - Seizure [Fatal]
  - Pulseless electrical activity [Fatal]
  - Ventricular tachycardia [Fatal]
  - Atrioventricular block first degree [Fatal]
  - Intentional overdose [Fatal]
  - Suicide attempt [Fatal]
  - Vomiting [Unknown]
  - Cardiac arrest [Fatal]
  - Confusional state [Unknown]
